FAERS Safety Report 21249334 (Version 1)
Quarter: 2022Q3

REPORT INFORMATION
  Report Type: Spontaneous
  Country: IN (occurrence: IN)
  Receive Date: 20220824
  Receipt Date: 20220824
  Transmission Date: 20221027
  Serious: Yes (Other)
  Sender: FDA-Public Use
  Company Number: IN-PFIZER INC-202100951471

PATIENT
  Age: 80 Year
  Sex: Female

DRUGS (4)
  1. PALBOCICLIB [Suspect]
     Active Substance: PALBOCICLIB
     Indication: Breast cancer metastatic
     Dosage: 75 MG, DAILY, CYCLIC
     Route: 048
     Dates: start: 20210112
  2. PALBOCICLIB [Suspect]
     Active Substance: PALBOCICLIB
     Dosage: 100 MG, CYCLIC (ONCE DAILY FOR 21 DAYS, THEN 7 DAYS OFF)
     Route: 048
     Dates: end: 202205
  3. FULVESTRANT [Concomitant]
     Active Substance: FULVESTRANT
     Dosage: 500 MG, MONTHLY
     Route: 030
  4. LEVETIRACETAM [Concomitant]
     Active Substance: LEVETIRACETAM
     Dosage: 500 MG, 2X/DAY

REACTIONS (4)
  - Interstitial lung disease [Unknown]
  - Second primary malignancy [Unknown]
  - Neoplasm progression [Unknown]
  - Pleural effusion [Unknown]
